FAERS Safety Report 4846028-9 (Version None)
Quarter: 2005Q4

REPORT INFORMATION
  Report Type: 
  Country: None (occurrence: None)
  Receive Date: 20051130
  Receipt Date: 20051128
  Transmission Date: 20060501
  Serious: Yes (Hospitalization)
  Sender: FDA-Public Use
  Company Number: TCI2005A04573

PATIENT
  Age: 73 Year
  Sex: Male

DRUGS (3)
  1. LEUPROLIDE ACETATE [Suspect]
     Indication: PROSTATE CANCER STAGE II
     Dosage: 3.75 MG (3.75 MG, 1 IN 28 D)
     Route: 058
     Dates: start: 20051018
  2. CHLORMADINONE ACETATE TAB [Suspect]
     Indication: PROSTATE CANCER STAGE II
     Dosage: SEE IMAGE
     Route: 048
     Dates: start: 20040830, end: 20050913
  3. CHLORMADINONE ACETATE TAB [Suspect]
     Indication: PROSTATE CANCER STAGE II
     Dosage: SEE IMAGE
     Route: 048
     Dates: start: 20050914, end: 20051029

REACTIONS (9)
  - ALANINE AMINOTRANSFERASE INCREASED [None]
  - ALCOHOLIC LIVER DISEASE [None]
  - ASPARTATE AMINOTRANSFERASE INCREASED [None]
  - BILIRUBIN CONJUGATED INCREASED [None]
  - BLOOD BILIRUBIN INCREASED [None]
  - DYSPEPSIA [None]
  - GAMMA-GLUTAMYLTRANSFERASE INCREASED [None]
  - JAUNDICE [None]
  - LIVER DISORDER [None]
